FAERS Safety Report 22897781 (Version 7)
Quarter: 2025Q3

REPORT INFORMATION
  Report Type: Spontaneous
  Country: EU (occurrence: EU)
  Receive Date: 20230903
  Receipt Date: 20250922
  Transmission Date: 20251021
  Serious: Yes (Other)
  Sender: SANDOZ
  Company Number: EU-SUN PHARMACEUTICAL INDUSTRIES LTD-2023RR-405156

PATIENT
  Age: 33 Year
  Sex: Female

DRUGS (24)
  1. CAPECITABINE [Suspect]
     Active Substance: CAPECITABINE
     Indication: Breast cancer
     Route: 048
  2. CAPECITABINE [Suspect]
     Active Substance: CAPECITABINE
     Indication: Disease progression
     Route: 048
  3. CYCLOPHOSPHAMIDE [Suspect]
     Active Substance: CYCLOPHOSPHAMIDE
     Indication: Breast cancer
     Route: 065
     Dates: start: 2012
  4. DOCETAXEL [Suspect]
     Active Substance: DOCETAXEL
     Indication: Invasive ductal breast carcinoma
     Route: 065
     Dates: start: 2019
  5. DOCETAXEL [Suspect]
     Active Substance: DOCETAXEL
     Indication: Breast cancer
  6. DOXORUBICIN HYDROCHLORIDE [Suspect]
     Active Substance: DOXORUBICIN HYDROCHLORIDE
     Indication: Breast cancer
     Route: 065
     Dates: start: 2012
  7. GOSERELIN [Suspect]
     Active Substance: GOSERELIN
     Indication: Breast cancer
     Route: 065
     Dates: start: 2012
  8. LETROZOLE [Suspect]
     Active Substance: LETROZOLE
     Indication: Breast cancer
     Route: 065
     Dates: start: 2012
  9. LETROZOLE [Suspect]
     Active Substance: LETROZOLE
     Indication: Product used for unknown indication
  10. LAPATINIB [Suspect]
     Active Substance: LAPATINIB
     Indication: Disease progression
     Route: 065
  11. PACLITAXEL [Suspect]
     Active Substance: PACLITAXEL
     Indication: Breast cancer
     Route: 065
     Dates: start: 2012
  12. PERTUZUMAB [Suspect]
     Active Substance: PERTUZUMAB
     Indication: Invasive ductal breast carcinoma
     Route: 065
  13. PERTUZUMAB [Suspect]
     Active Substance: PERTUZUMAB
     Route: 065
     Dates: start: 2019
  14. TAMOXIFEN [Suspect]
     Active Substance: TAMOXIFEN
     Indication: Breast cancer
     Route: 065
  15. TAMOXIFEN [Suspect]
     Active Substance: TAMOXIFEN
     Indication: Product used for unknown indication
  16. TRASTUZUMAB [Suspect]
     Active Substance: TRASTUZUMAB
     Indication: Breast cancer
     Route: 058
     Dates: start: 2012
  17. TRASTUZUMAB [Suspect]
     Active Substance: TRASTUZUMAB
     Indication: Invasive ductal breast carcinoma
     Route: 065
  18. TRASTUZUMAB [Suspect]
     Active Substance: TRASTUZUMAB
     Indication: Breast cancer
     Route: 065
     Dates: start: 2019
  19. LAPATINIB [Concomitant]
     Active Substance: LAPATINIB
     Indication: Product used for unknown indication
     Route: 065
  20. LETROZOLE [Concomitant]
     Active Substance: LETROZOLE
     Indication: Product used for unknown indication
     Route: 065
  21. TAMOXIFEN [Concomitant]
     Active Substance: TAMOXIFEN
     Indication: Product used for unknown indication
     Route: 065
  22. FAM-TRASTUZUMAB DERUXTECAN-NXKI [Concomitant]
     Active Substance: FAM-TRASTUZUMAB DERUXTECAN-NXKI
     Indication: Product used for unknown indication
     Route: 065
     Dates: start: 2021
  23. FAM-TRASTUZUMAB DERUXTECAN-NXKI [Concomitant]
     Active Substance: FAM-TRASTUZUMAB DERUXTECAN-NXKI
     Indication: Breast cancer
     Route: 065
     Dates: start: 202111
  24. XELODA [Concomitant]
     Active Substance: CAPECITABINE
     Indication: Product used for unknown indication
     Route: 065

REACTIONS (9)
  - Dyspnoea [Unknown]
  - Pain [Unknown]
  - Disease progression [Unknown]
  - Biliary colic [Unknown]
  - Therapeutic product effect incomplete [Unknown]
  - Treatment failure [Unknown]
  - Drug ineffective [Recovered/Resolved]
  - Intentional product use issue [Unknown]
  - Off label use [Unknown]
